FAERS Safety Report 20198050 (Version 1)
Quarter: 2021Q4

REPORT INFORMATION
  Report Type: Spontaneous
  Country: US (occurrence: US)
  Receive Date: 20211217
  Receipt Date: 20211217
  Transmission Date: 20220303
  Serious: No
  Sender: FDA-Public Use
  Company Number: US-ALLERGAN-2127293US

PATIENT
  Age: 75 Year
  Sex: Male

DRUGS (1)
  1. PREDNISOLONE ACETATE [Suspect]
     Active Substance: PREDNISOLONE ACETATE
     Indication: Product used for unknown indication
     Dosage: 2 TIMES ON 27-JUL-2021 (TUESDAY) AND 3 TIMES A DAY ON 28-JUL-2021 (WEDNESDAY)
     Route: 047
     Dates: start: 20210727, end: 20210728

REACTIONS (6)
  - Insomnia [Recovering/Resolving]
  - Pain [Recovering/Resolving]
  - Eyelid ptosis [Recovering/Resolving]
  - Headache [Recovering/Resolving]
  - Eye pain [Recovering/Resolving]
  - Burning sensation [Recovering/Resolving]

NARRATIVE: CASE EVENT DATE: 20210701
